FAERS Safety Report 4956491-0 (Version None)
Quarter: 2006Q1

REPORT INFORMATION
  Report Type: 
  Country: None (occurrence: None)
  Receive Date: 20060329
  Receipt Date: 20051026
  Transmission Date: 20060701
  Serious: Yes (Other)
  Sender: FDA-Public Use
  Company Number: US-MERCK-0510USA09716

PATIENT
  Age: 50 Year
  Sex: Female
  Weight: 181 kg

DRUGS (1)
  1. VIOXX [Suspect]
     Indication: ARTHRITIS
     Route: 048
     Dates: start: 20020101, end: 20050101

REACTIONS (3)
  - CARDIOVASCULAR DISORDER [None]
  - POLYTRAUMATISM [None]
  - PULMONARY EMBOLISM [None]
